FAERS Safety Report 14617517 (Version 1)
Quarter: 2018Q1

REPORT INFORMATION
  Report Type: Spontaneous
  Country: KZ (occurrence: KZ)
  Receive Date: 20180309
  Receipt Date: 20180309
  Transmission Date: 20180509
  Serious: Yes (Other)
  Sender: FDA-Public Use
  Company Number: PHHY2018KZ036607

PATIENT
  Age: 24 Year
  Sex: Female
  Weight: 54 kg

DRUGS (8)
  1. DELAMANID [Suspect]
     Active Substance: DELAMANID
     Indication: PULMONARY TUBERCULOSIS
     Dosage: 200 MG, QD
     Route: 065
     Dates: start: 20171225
  2. LINEZOLID. [Suspect]
     Active Substance: LINEZOLID
     Indication: PULMONARY TUBERCULOSIS
     Dosage: 600 MG, QD
     Route: 065
     Dates: start: 20171225
  3. AMOXICLAV [Suspect]
     Active Substance: AMOXICILLIN\CLAVULANIC ACID
     Dosage: UNK
     Route: 065
     Dates: start: 20180129
  4. CILASTATIN/IMIPEN [Suspect]
     Active Substance: CILASTATIN SODIUM\IMIPENEM
     Indication: PULMONARY TUBERCULOSIS
     Dosage: 2000 MG, QD
     Route: 065
     Dates: start: 20171225, end: 20180124
  5. MOXIFLOXACIN. [Suspect]
     Active Substance: MOXIFLOXACIN
     Indication: PULMONARY TUBERCULOSIS
     Dosage: 400 MG, QD
     Route: 065
     Dates: start: 20171225
  6. AMOXICLAV [Suspect]
     Active Substance: AMOXICILLIN\CLAVULANIC ACID
     Indication: PULMONARY TUBERCULOSIS
     Dosage: UNK
     Route: 065
     Dates: start: 20171225, end: 20180124
  7. CLOFAZIMINE [Suspect]
     Active Substance: CLOFAZIMINE
     Indication: PULMONARY TUBERCULOSIS
     Dosage: 200 MG, UNK
     Route: 065
     Dates: start: 20171225
  8. CILASTATIN/IMIPEN [Suspect]
     Active Substance: CILASTATIN SODIUM\IMIPENEM
     Dosage: UNK
     Route: 065
     Dates: start: 20180129, end: 20180130

REACTIONS (6)
  - Abnormal dreams [Recovered/Resolved]
  - Vomiting [Unknown]
  - Mental disorder [Unknown]
  - Nightmare [Recovered/Resolved]
  - Anxiety [Recovered/Resolved]
  - Nausea [Unknown]

NARRATIVE: CASE EVENT DATE: 20180124
